FAERS Safety Report 13609779 (Version 1)
Quarter: 2017Q2

REPORT INFORMATION
  Report Type: Spontaneous
  Country: FR (occurrence: FR)
  Receive Date: 20170602
  Receipt Date: 20170602
  Transmission Date: 20170830
  Serious: Yes (Other)
  Sender: FDA-Public Use
  Company Number: FR-ELI_LILLY_AND_COMPANY-FR201705008628

PATIENT
  Sex: Female

DRUGS (2)
  1. CYMBALTA [Suspect]
     Active Substance: DULOXETINE HYDROCHLORIDE
     Indication: NEURALGIA
     Dosage: 30 MG, DAILY
     Route: 065
  2. CYMBALTA [Suspect]
     Active Substance: DULOXETINE HYDROCHLORIDE
     Dosage: 30 MG, EVERY 3 DAYS
     Route: 065

REACTIONS (6)
  - Hallucination [Unknown]
  - Toxicity to various agents [Unknown]
  - Drug intolerance [Unknown]
  - Serum serotonin increased [Unknown]
  - Inappropriate schedule of drug administration [Unknown]
  - Off label use [Unknown]
